FAERS Safety Report 10691644 (Version 1)
Quarter: 2015Q1

REPORT INFORMATION
  Report Type: Spontaneous
  Country: US (occurrence: US)
  Receive Date: 20150105
  Receipt Date: 20150105
  Transmission Date: 20150720
  Serious: No
  Sender: FDA-Public Use
  Company Number: US-BAYER-2014-185049

PATIENT
  Age: 69 Year
  Sex: Female
  Weight: 86 kg

DRUGS (2)
  1. ALEVE [Suspect]
     Active Substance: NAPROXEN SODIUM
     Indication: ANALGESIC THERAPY
     Dosage: 8 DF, QD
     Route: 048
     Dates: start: 20141111
  2. ONE A DAY ESSENTIAL [Suspect]
     Active Substance: VITAMINS
     Dosage: 1 DF, QD
     Route: 048

REACTIONS (5)
  - Dysgeusia [Recovered/Resolved]
  - Drug ineffective [Unknown]
  - Incorrect dosage administered [Unknown]
  - Wrong technique in drug usage process [Unknown]
  - Eructation [Recovered/Resolved]

NARRATIVE: CASE EVENT DATE: 20141111
